FAERS Safety Report 4874277-2 (Version None)
Quarter: 2006Q1

REPORT INFORMATION
  Report Type: 
  Country: None (occurrence: None)
  Receive Date: 20060106
  Receipt Date: 20020204
  Transmission Date: 20060701
  Serious: Yes (Life-Threatening, Hospitalization, Other)
  Sender: FDA-Public Use
  Company Number: US-MERCK-0202USA00230

PATIENT
  Age: 42 Year
  Sex: Male
  Weight: 109 kg

DRUGS (17)
  1. VIOXX [Suspect]
     Indication: OSTEOARTHRITIS
     Route: 048
     Dates: start: 20010301, end: 20010601
  2. VIOXX [Suspect]
     Route: 048
     Dates: start: 20010601, end: 20010801
  3. VIOXX [Suspect]
     Route: 048
     Dates: start: 20010901, end: 20011027
  4. VIOXX [Suspect]
     Route: 048
     Dates: start: 20010823, end: 20010901
  5. VIOXX [Suspect]
     Route: 048
     Dates: start: 20010301, end: 20010601
  6. VIOXX [Suspect]
     Route: 048
     Dates: start: 20010601, end: 20010801
  7. VIOXX [Suspect]
     Route: 048
     Dates: start: 20010901, end: 20011027
  8. VIOXX [Suspect]
     Route: 048
     Dates: start: 20010823, end: 20010901
  9. TENORMIN [Concomitant]
     Route: 065
     Dates: start: 19951101
  10. TENORMIN [Concomitant]
     Route: 065
  11. MONOPRIL [Concomitant]
     Route: 065
     Dates: start: 19951101
  12. ASPIRIN [Concomitant]
     Route: 065
     Dates: start: 19951101
  13. LIPITOR [Concomitant]
     Route: 065
     Dates: start: 19951101
  14. CLONIDINE [Concomitant]
     Indication: HYPERTENSION
     Route: 061
     Dates: end: 20010823
  15. CLONIDINE [Concomitant]
     Route: 048
     Dates: start: 20010823
  16. ANAPROX [Concomitant]
     Route: 065
  17. IBUPROFEN [Concomitant]
     Route: 065

REACTIONS (29)
  - ACCIDENT [None]
  - ACUTE MYOCARDIAL INFARCTION [None]
  - ANXIETY [None]
  - APPLICATION SITE IRRITATION [None]
  - ARTHRALGIA [None]
  - BRONCHITIS [None]
  - CARDIAC FAILURE CONGESTIVE [None]
  - CORONARY ARTERY DISEASE [None]
  - CORONARY ARTERY STENOSIS [None]
  - COUGH [None]
  - DIVERTICULITIS [None]
  - DIVERTICULUM [None]
  - GASTRITIS [None]
  - GASTROOESOPHAGEAL REFLUX DISEASE [None]
  - GROIN PAIN [None]
  - HAEMORRHOIDS [None]
  - HYPERTENSION [None]
  - LOWER RESPIRATORY TRACT INFECTION [None]
  - MITRAL VALVE INCOMPETENCE [None]
  - NASOPHARYNGITIS [None]
  - PLEURAL EFFUSION [None]
  - PULMONARY OEDEMA [None]
  - RECTAL HAEMORRHAGE [None]
  - SKIN IRRITATION [None]
  - SLEEP APNOEA SYNDROME [None]
  - TENSION HEADACHE [None]
  - TRICUSPID VALVE INCOMPETENCE [None]
  - VENTRICULAR HYPERTROPHY [None]
  - WEIGHT INCREASED [None]
